FAERS Safety Report 6971167-6 (Version None)
Quarter: 2010Q3

REPORT INFORMATION
  Report Type: 
  Country: None (occurrence: None)
  Receive Date: 20100908
  Receipt Date: 20100621
  Transmission Date: 20110219
  Serious: Yes (Other)
  Sender: FDA-Public Use
  Company Number: IE-WYE-G06029710

PATIENT
  Sex: Female

DRUGS (2)
  1. ZOTON FASTAB [Suspect]
     Dosage: 30 MG EVERY 1 TOT
  2. ZOTON FASTAB [Suspect]
     Dosage: 30 MG EVERY 1 TOT

REACTIONS (3)
  - HYPERSENSITIVITY [None]
  - LIP SWELLING [None]
  - RASH [None]
